FAERS Safety Report 8065402-3 (Version None)
Quarter: 2012Q1

REPORT INFORMATION
  Report Type: 
  Country: None (occurrence: None)
  Receive Date: 20120117
  Receipt Date: 20111205
  Transmission Date: 20120608
  Serious: Yes (Other)
  Sender: FDA-Public Use
  Company Number: 2012SP002007

PATIENT
  Age: 50 Year
  Sex: Female

DRUGS (1)
  1. BOCEPREVIR (SCH-503034) [Suspect]
     Indication: PRODUCT USED FOR UNKNOWN INDICATION

REACTIONS (6)
  - HAEMOLYTIC ANAEMIA [None]
  - LEUKOPENIA [None]
  - DIABETES MELLITUS [None]
  - THROMBOCYTOPENIA [None]
  - BLOOD BILIRUBIN INCREASED [None]
  - ENCEPHALOPATHY [None]
